FAERS Safety Report 5325805-4 (Version None)
Quarter: 2007Q2

REPORT INFORMATION
  Report Type: 
  Country: None (occurrence: None)
  Receive Date: 20070510
  Receipt Date: 20070430
  Transmission Date: 20071010
  Serious: Yes (Other)
  Sender: FDA-Public Use
  Company Number: GXKR2006FR08592

PATIENT
  Age: 73 Year
  Sex: Female
  Weight: 72 kg

DRUGS (6)
  1. VERAPAMIL [Suspect]
     Indication: HYPERTENSION
     Dosage: 240 MG, DAILY, ORAL
     Route: 048
  2. NEO-MERCAZOLE TAB [Concomitant]
  3. BUDESONIDE W/FORMOTEROL FUMARATE (BUDESONIDE, FORMOTEROL FUMARATE) [Concomitant]
  4. PIASCLEDINE (GLYCINE MAX SEED OIL, PERSEA AMERICANA OIL, PERSEAE OLEUM [Concomitant]
  5. TRIMETAZIDINE HYDROCHLORIDE (TRIMETAZIDINE HYDROCHLORIDE) [Concomitant]
  6. AZITHROMYCIN [Concomitant]

REACTIONS (3)
  - GASTROOESOPHAGEAL REFLUX DISEASE [None]
  - HEADACHE [None]
  - NAUSEA [None]
